FAERS Safety Report 17709641 (Version 3)
Quarter: 2021Q2

REPORT INFORMATION
  Report Type: Spontaneous
  Country: US (occurrence: US)
  Receive Date: 20200427
  Receipt Date: 20210625
  Transmission Date: 20210716
  Serious: Yes (Death, Hospitalization, Other)
  Sender: FDA-Public Use
  Company Number: US-ASTRAZENECA-2020SE54213

PATIENT
  Age: 15376 Day
  Sex: Female
  Weight: 65.8 kg

DRUGS (107)
  1. METOPROLOL TARTRATE. [Concomitant]
     Active Substance: METOPROLOL TARTRATE
  2. ATIVAN [Concomitant]
     Active Substance: LORAZEPAM
  3. DIPHENHYDRAMINE. [Concomitant]
     Active Substance: DIPHENHYDRAMINE
  4. NOVOLOG [Concomitant]
     Active Substance: INSULIN ASPART
  5. CEFTRIAXONE. [Concomitant]
     Active Substance: CEFTRIAXONE
  6. BENTYL [Concomitant]
     Active Substance: DICYCLOMINE HYDROCHLORIDE
  7. DIPHENOXYLATE [Concomitant]
     Active Substance: DIPHENOXYLATE
  8. HYDROMORPHONE [Concomitant]
     Active Substance: HYDROMORPHONE
  9. PREVACID 24 HR [Suspect]
     Active Substance: LANSOPRAZOLE
     Indication: GASTROOESOPHAGEAL REFLUX DISEASE
     Route: 065
     Dates: start: 199504, end: 201501
  10. METOCLOPRAMIDE. [Concomitant]
     Active Substance: METOCLOPRAMIDE
  11. INVEGA [Concomitant]
     Active Substance: PALIPERIDONE
  12. PERCOCET [Concomitant]
     Active Substance: ACETAMINOPHEN\OXYCODONE HYDROCHLORIDE
  13. SENNA [Concomitant]
     Active Substance: SENNA LEAF\SENNOSIDES\SENNOSIDES A AND B
  14. COLACE [Concomitant]
     Active Substance: DOCUSATE SODIUM
  15. LIDOCAINE. [Concomitant]
     Active Substance: LIDOCAINE
  16. NEXIUM 24HR [Suspect]
     Active Substance: ESOMEPRAZOLE MAGNESIUM
     Indication: GASTROOESOPHAGEAL REFLUX DISEASE
     Route: 048
     Dates: start: 199504, end: 201501
  17. NEXIUM 24HR [Suspect]
     Active Substance: ESOMEPRAZOLE MAGNESIUM
     Indication: GASTROOESOPHAGEAL REFLUX DISEASE
     Route: 048
     Dates: start: 2010, end: 2015
  18. LORTAB [Concomitant]
     Active Substance: ACETAMINOPHEN\HYDROCODONE BITARTRATE
  19. CIPROFLOXACIN. [Concomitant]
     Active Substance: CIPROFLOXACIN
  20. GABAPENTIN. [Concomitant]
     Active Substance: GABAPENTIN
  21. LEVOFLOXACIN. [Concomitant]
     Active Substance: LEVOFLOXACIN
  22. MORPHINE [Concomitant]
     Active Substance: MORPHINE
  23. AMLODIPINE [Concomitant]
     Active Substance: AMLODIPINE BESYLATE
  24. RANITIDINE. [Concomitant]
     Active Substance: RANITIDINE
  25. ALBUTEROL. [Concomitant]
     Active Substance: ALBUTEROL
  26. ROBAXIN [Concomitant]
     Active Substance: METHOCARBAMOL
  27. POTASSIUM CHLORIDE. [Concomitant]
     Active Substance: POTASSIUM CHLORIDE
  28. OMNICEF [Concomitant]
     Active Substance: CEFDINIR
  29. COUMADIN [Concomitant]
     Active Substance: WARFARIN SODIUM
  30. NICARDIPINE [Concomitant]
     Active Substance: NICARDIPINE
  31. NEXIUM [Suspect]
     Active Substance: ESOMEPRAZOLE MAGNESIUM
     Indication: GASTROOESOPHAGEAL REFLUX DISEASE
     Route: 048
     Dates: start: 199504, end: 201501
  32. NEXIUM [Suspect]
     Active Substance: ESOMEPRAZOLE MAGNESIUM
     Indication: GASTROOESOPHAGEAL REFLUX DISEASE
     Route: 048
     Dates: start: 2010, end: 2015
  33. DIOVAN [Concomitant]
     Active Substance: VALSARTAN
  34. LIPITOR [Concomitant]
     Active Substance: ATORVASTATIN CALCIUM
  35. BACLOFEN. [Concomitant]
     Active Substance: BACLOFEN
  36. TRAMADOL. [Concomitant]
     Active Substance: TRAMADOL
  37. LABETALOL [Concomitant]
     Active Substance: LABETALOL\LABETALOL HYDROCHLORIDE
  38. ISOSORBIDE MONONITRATE. [Concomitant]
     Active Substance: ISOSORBIDE MONONITRATE
  39. HYDROCODONE [Concomitant]
     Active Substance: HYDROCODONE
  40. VANCOMYCIN [Concomitant]
     Active Substance: VANCOMYCIN
  41. ASPIRIN. [Concomitant]
     Active Substance: ASPIRIN
  42. MELATONIN [Concomitant]
     Active Substance: MELATONIN
  43. NITROGLYCERIN. [Concomitant]
     Active Substance: NITROGLYCERIN
  44. IRON [Concomitant]
     Active Substance: IRON
  45. NICARDIPINE [Concomitant]
     Active Substance: NICARDIPINE
  46. TUMS [Concomitant]
     Active Substance: CALCIUM CARBONATE
  47. MILK OF MAGNESIA [Concomitant]
     Active Substance: MAGNESIUM HYDROXIDE
  48. FLEXERIL [Concomitant]
     Active Substance: CYCLOBENZAPRINE HYDROCHLORIDE
  49. TIZANIDINE. [Concomitant]
     Active Substance: TIZANIDINE
  50. FIORICET [Concomitant]
     Active Substance: ACETAMINOPHEN\BUTALBITAL\CAFFEINE
  51. RISPERDAL [Concomitant]
     Active Substance: RISPERIDONE
  52. HYDRALAZINE [Concomitant]
     Active Substance: HYDRALAZINE HYDROCHLORIDE
  53. MULTIVITAMINS [Concomitant]
     Active Substance: VITAMINS
  54. PHENYTOIN. [Concomitant]
     Active Substance: PHENYTOIN
  55. PREMARIN [Concomitant]
     Active Substance: ESTROGENS, CONJUGATED
  56. FOLIC ACID. [Concomitant]
     Active Substance: FOLIC ACID
  57. MULTIVITAMINS [Concomitant]
     Active Substance: VITAMINS
  58. DOXYCYCLINE HYCLATE. [Concomitant]
     Active Substance: DOXYCYCLINE HYCLATE
  59. CLONIDINE. [Concomitant]
     Active Substance: CLONIDINE
  60. CALCIUM ACETATE. [Concomitant]
     Active Substance: CALCIUM ACETATE
  61. SEROQUEL [Concomitant]
     Active Substance: QUETIAPINE FUMARATE
  62. BENZONATATE. [Concomitant]
     Active Substance: BENZONATATE
  63. BISACODYL. [Concomitant]
     Active Substance: BISACODYL
  64. SODIUM CHLORIDE. [Concomitant]
     Active Substance: SODIUM CHLORIDE
  65. METOPROLOL SUCCINATE. [Concomitant]
     Active Substance: METOPROLOL SUCCINATE
  66. OXYCODONE [Concomitant]
     Active Substance: OXYCODONE
  67. TAMIFLU [Concomitant]
     Active Substance: OSELTAMIVIR PHOSPHATE
  68. HEPARIN [Concomitant]
     Active Substance: HEPARIN SODIUM
  69. PREVACID [Suspect]
     Active Substance: LANSOPRAZOLE
     Indication: GASTROOESOPHAGEAL REFLUX DISEASE
     Route: 065
     Dates: start: 2010, end: 2015
  70. PREVACID 24 HR [Suspect]
     Active Substance: LANSOPRAZOLE
     Indication: GASTROOESOPHAGEAL REFLUX DISEASE
     Route: 065
     Dates: start: 2010, end: 2015
  71. NAPROXEN. [Concomitant]
     Active Substance: NAPROXEN
  72. ABILIFY [Concomitant]
     Active Substance: ARIPIPRAZOLE
  73. CYMBALTA [Concomitant]
     Active Substance: DULOXETINE HYDROCHLORIDE
  74. DEXTROSE. [Concomitant]
     Active Substance: DEXTROSE
  75. LIDOCAINE. [Concomitant]
     Active Substance: LIDOCAINE
  76. LOMOTIL [Concomitant]
     Active Substance: ATROPINE SULFATE\DIPHENOXYLATE HYDROCHLORIDE
  77. ELIQUIS [Concomitant]
     Active Substance: APIXABAN
  78. CENTRUM [Concomitant]
     Active Substance: VITAMINS
  79. MORPHINE SULFATE. [Concomitant]
     Active Substance: MORPHINE SULFATE
  80. PHENERGAN [Concomitant]
     Active Substance: PROMETHAZINE HYDROCHLORIDE
  81. PROMETHAZINE [Concomitant]
     Active Substance: PROMETHAZINE HYDROCHLORIDE
  82. AMOXICILLIN. [Concomitant]
     Active Substance: AMOXICILLIN
  83. CITALOPRAM [Concomitant]
     Active Substance: CITALOPRAM HYDROBROMIDE
  84. METRONIDAZOLE. [Concomitant]
     Active Substance: METRONIDAZOLE
  85. WARFARIN [Concomitant]
     Active Substance: WARFARIN
  86. ZOFRAN [Concomitant]
     Active Substance: ONDANSETRON HYDROCHLORIDE
  87. CYANOCOBALAMIN. [Concomitant]
     Active Substance: CYANOCOBALAMIN
  88. EPOGEN [Concomitant]
     Active Substance: ERYTHROPOIETIN
  89. XANAX [Concomitant]
     Active Substance: ALPRAZOLAM
  90. ACETAMINOPHEN. [Concomitant]
     Active Substance: ACETAMINOPHEN
  91. HEPARIN [Concomitant]
     Active Substance: HEPARIN SODIUM
  92. FENTANYL. [Concomitant]
     Active Substance: FENTANYL
  93. PROPOFOL. [Concomitant]
     Active Substance: PROPOFOL
  94. METHYLPREDNISOLONE. [Concomitant]
     Active Substance: METHYLPREDNISOLONE
  95. CARAFATE [Concomitant]
     Active Substance: SUCRALFATE
  96. VASOTEC [Concomitant]
     Active Substance: ENALAPRIL MALEATE
  97. CARBAMAZEPINE. [Concomitant]
     Active Substance: CARBAMAZEPINE
  98. PREVACID [Suspect]
     Active Substance: LANSOPRAZOLE
     Indication: GASTROOESOPHAGEAL REFLUX DISEASE
     Route: 065
     Dates: start: 199504, end: 201501
  99. NIFEDIPINE. [Concomitant]
     Active Substance: NIFEDIPINE
  100. CARVEDILOL. [Concomitant]
     Active Substance: CARVEDILOL
  101. ZOLOFT [Concomitant]
     Active Substance: SERTRALINE HYDROCHLORIDE
  102. HALDOL [Concomitant]
     Active Substance: HALOPERIDOL
  103. DULOXETINE. [Concomitant]
     Active Substance: DULOXETINE
  104. ZOSYN [Concomitant]
     Active Substance: PIPERACILLIN SODIUM\TAZOBACTAM SODIUM
  105. ZOLPIDEM [Concomitant]
     Active Substance: ZOLPIDEM TARTRATE
  106. PIPERACILLIN/AMIKACIN/TAZOBACTAM [Concomitant]
  107. DOXYCYCLINE. [Concomitant]
     Active Substance: DOXYCYCLINE

REACTIONS (8)
  - Hyperparathyroidism secondary [Unknown]
  - Chronic kidney disease [Unknown]
  - Renal failure [Unknown]
  - Nephrogenic anaemia [Unknown]
  - Acute kidney injury [Unknown]
  - Renal tubular necrosis [Unknown]
  - End stage renal disease [Fatal]
  - Chronic kidney disease-mineral and bone disorder [Unknown]

NARRATIVE: CASE EVENT DATE: 20090116
